FAERS Safety Report 21633262 (Version 1)
Quarter: 2022Q4

REPORT INFORMATION
  Report Type: Other
  Country: CN (occurrence: None)
  Receive Date: 20221123
  Receipt Date: 20221123
  Transmission Date: 20230113
  Serious: Yes (Other)
  Sender: FDA-Public Use
  Company Number: CN-ROCHE-3223344

PATIENT
  Age: 37 Year
  Sex: Female

DRUGS (3)
  1. ATEZOLIZUMAB [Suspect]
     Active Substance: ATEZOLIZUMAB
     Indication: Gastric cancer
     Dosage: TOTAL 7 CYCLES. ON 23/MAR/2022, SHE RECEIVED LAST DOSE OF ATEZOLIZUMAB.
     Route: 065
     Dates: start: 20211027
  2. IRINOTECAN [Suspect]
     Active Substance: IRINOTECAN
     Indication: Gastric cancer
     Dosage: TOTAL 7 CYCLES. ON 23/MAR/2022, SHE RECEIVED LAST DOSE OF IRINOTECAN.
     Route: 065
     Dates: start: 20211027
  3. SURUFATINIB [Suspect]
     Active Substance: SURUFATINIB
     Indication: Gastric cancer
     Dosage: TOTAL 7 CYCLES. ON 23/MAR/2022, SHE RECEIVED LAST DOSE OF SURUFATINIB.
     Route: 065
     Dates: start: 20211027

REACTIONS (3)
  - Myelosuppression [Recovering/Resolving]
  - Nausea [Recovering/Resolving]
  - Vomiting [Recovering/Resolving]
